FAERS Safety Report 9384853 (Version 4)
Quarter: 2013Q4

REPORT INFORMATION
  Report Type: Spontaneous
  Country: US (occurrence: US)
  Receive Date: 20130705
  Receipt Date: 20131113
  Transmission Date: 20140711
  Serious: Yes (Other)
  Sender: FDA-Public Use
  Company Number: US-PFIZER INC-2013197536

PATIENT
  Age: 56 Year
  Sex: Female
  Weight: 90.7 kg

DRUGS (10)
  1. LYRICA [Suspect]
     Indication: FIBROMYALGIA
     Dosage: 50 MG, 1X/DAY
     Route: 048
     Dates: start: 20130301, end: 2013
  2. LYRICA [Suspect]
     Indication: PAIN
     Dosage: 50 MG, 3X/DAY
     Route: 048
     Dates: start: 20130613
  3. LYRICA [Suspect]
     Dosage: 300 MG, 1X/DAY
     Route: 048
     Dates: start: 2013, end: 2013
  4. LYRICA [Suspect]
     Dosage: 150 MG, 3X/DAY
     Route: 048
     Dates: start: 201306
  5. ULTRAM [Concomitant]
     Indication: FIBROMYALGIA
     Dosage: 400 MG DAILY
  6. ULTRAM [Concomitant]
     Dosage: 50 MG, AS NEEDED (QID)
  7. ULTRAM [Concomitant]
     Dosage: 50-100 MG AS NEEDED (QID PRN)
  8. FLEXERIL [Concomitant]
     Indication: FIBROMYALGIA
     Dosage: 10 MG, 2X/DAY
  9. FLEXERIL [Concomitant]
     Dosage: 10 MG, AS NEEDED (TID, PRN)
  10. VITAMIN D [Concomitant]
     Indication: VITAMIN D DEFICIENCY
     Dosage: 50000 IU, WEEKLY (10 WEEKS)

REACTIONS (12)
  - Mental impairment [Unknown]
  - Vitamin D decreased [Unknown]
  - Pain [Not Recovered/Not Resolved]
  - Drug ineffective [Unknown]
  - Dizziness [Not Recovered/Not Resolved]
  - Nightmare [Not Recovered/Not Resolved]
  - Nervousness [Not Recovered/Not Resolved]
  - Irritability [Not Recovered/Not Resolved]
  - Abnormal dreams [Not Recovered/Not Resolved]
  - Feeling drunk [Unknown]
  - Gait disturbance [Unknown]
  - Speech disorder [Unknown]
